FAERS Safety Report 4673268-4 (Version None)
Quarter: 2005Q2

REPORT INFORMATION
  Report Type: 
  Country: None (occurrence: None)
  Receive Date: 20050525
  Receipt Date: 20050511
  Transmission Date: 20051028
  Serious: Yes (Other)
  Sender: FDA-Public Use
  Company Number: US-AMGEN-US132708

PATIENT
  Sex: Male

DRUGS (1)
  1. ENBREL [Suspect]
     Indication: PSORIASIS
     Route: 058
     Dates: start: 20040621, end: 20050208

REACTIONS (4)
  - ARRHYTHMIA [None]
  - CHEST DISCOMFORT [None]
  - DYSPNOEA [None]
  - MYOCARDIAL INFARCTION [None]
